FAERS Safety Report 7687018-0 (Version None)
Quarter: 2011Q3

REPORT INFORMATION
  Report Type: 
  Country: None (occurrence: None)
  Receive Date: 20110816
  Receipt Date: 20110810
  Transmission Date: 20111222
  Serious: No
  Sender: FDA-Public Use
  Company Number: US-BAYER-201033537NA

PATIENT
  Age: 30 Year
  Sex: Male

DRUGS (4)
  1. BETASERON [Suspect]
     Dosage: 4 MIU, QOD
     Route: 058
     Dates: start: 20110805
  2. BETASERON [Suspect]
     Indication: RELAPSING-REMITTING MULTIPLE SCLEROSIS
     Dosage: 8 MIU, UNK
     Route: 058
     Dates: start: 20100812, end: 20110724
  3. ACETAMINOPHEN [Concomitant]
  4. STEROID PILLS [Concomitant]

REACTIONS (8)
  - BALANCE DISORDER [None]
  - PAIN IN EXTREMITY [None]
  - SENSATION OF HEAVINESS [None]
  - ERYTHEMA [None]
  - SOMNOLENCE [None]
  - ABDOMINAL PAIN UPPER [None]
  - SLEEP DISORDER [None]
  - MUSCLE SPASMS [None]
